FAERS Safety Report 20245771 (Version 1)
Quarter: 2021Q4

REPORT INFORMATION
  Report Type: Spontaneous
  Country: ES (occurrence: ES)
  Receive Date: 20211229
  Receipt Date: 20211229
  Transmission Date: 20220304
  Serious: Yes (Other)
  Sender: FDA-Public Use
  Company Number: None

PATIENT
  Age: 78 Year
  Sex: Female

DRUGS (1)
  1. CAPECITABINE [Suspect]
     Active Substance: CAPECITABINE
     Indication: Breast cancer metastatic
     Dosage: LAST DOSE: 08/MAR/2020
     Route: 048
     Dates: start: 20191211

REACTIONS (2)
  - Paraneoplastic dermatomyositis [Unknown]
  - Toxicity to various agents [Unknown]
